FAERS Safety Report 7968947-7 (Version None)
Quarter: 2011Q4

REPORT INFORMATION
  Report Type: 
  Country: None (occurrence: None)
  Receive Date: 20111208
  Receipt Date: 20111030
  Transmission Date: 20120403
  Serious: Yes (Hospitalization)
  Sender: FDA-Public Use
  Company Number: 1000009864

PATIENT
  Age: 54 Year
  Sex: Female

DRUGS (7)
  1. PYRIDOXINE (PYRIDOXINE)(PYRIDOXINE) [Concomitant]
  2. DIPOTASSIUM (CLORAZEPATE DIPOTASSIUM) [Suspect]
     Indication: ALCOHOL WITHDRAWAL SYNDROME
     Dosage: 100 MG
  3. THIAMINE(THIAMINE)(THIAMINE) [Concomitant]
  4. CYAMEMAZINE(CYAMEMAZINE) [Suspect]
     Indication: MAJOR DEPRESSION
     Dosage: 25 MG
  5. ACAMPROSATE CALCIUM [Suspect]
     Dosage: 1332 MG
  6. CITALOPRAM HYDROBROMIDE [Suspect]
     Indication: MAJOR DEPRESSION
     Dosage: 20 MG (20 MG,  1 IN 1 D),ORAL
     Route: 048
  7. NICARDIPINE HCL [Concomitant]

REACTIONS (12)
  - FLIGHT OF IDEAS [None]
  - WITHDRAWAL SYNDROME [None]
  - AGITATION [None]
  - MUSCLE RIGIDITY [None]
  - DISORIENTATION [None]
  - RESTLESSNESS [None]
  - NEGATIVISM [None]
  - AKINESIA [None]
  - CATATONIA [None]
  - MUTISM [None]
  - POSTURE ABNORMAL [None]
  - INCOHERENT [None]
